FAERS Safety Report 9061809 (Version 1)
Quarter: 2013Q1

REPORT INFORMATION
  Report Type: Spontaneous
  Country: US (occurrence: None)
  Receive Date: 20130118
  Receipt Date: 20130118
  Transmission Date: 20140127
  Serious: Yes (Other)
  Sender: FDA-Public Use
  Company Number: 2013PL000005

PATIENT
  Age: 54 Year
  Sex: Female

DRUGS (3)
  1. IMURAN (AZATHIOPRINE) [Suspect]
     Indication: CROHN^S DISEASE
     Dates: end: 201101
  2. HUMIRA [Suspect]
     Indication: CROHN^S DISEASE
     Route: 058
     Dates: start: 2009, end: 201101
  3. ZYLOPRIM [Suspect]
     Indication: GOUT
     Dates: start: 201101

REACTIONS (7)
  - Malnutrition [None]
  - Renal disorder [None]
  - Condition aggravated [None]
  - Dehydration [None]
  - Haemoglobin decreased [None]
  - Weight decreased [None]
  - Crohn^s disease [None]
